FAERS Safety Report 7475919-8 (Version None)
Quarter: 2011Q2

REPORT INFORMATION
  Report Type: 
  Country: None (occurrence: None)
  Receive Date: 20110512
  Receipt Date: 20110509
  Transmission Date: 20111010
  Serious: Yes (Hospitalization)
  Sender: FDA-Public Use
  Company Number: PHHO2010DE09350

PATIENT
  Sex: Female

DRUGS (4)
  1. SANDIMMUNE [Suspect]
     Indication: RENAL TRANSPLANT
     Dosage: 50 MG, BID
     Route: 048
     Dates: start: 20100421
  2. MYFORTIC [Suspect]
     Indication: RENAL TRANSPLANT
     Dosage: 360 MG, BID
     Route: 048
     Dates: start: 20100421
  3. NO TREATMENT RECEIVED [Suspect]
  4. PREDNISONE [Suspect]
     Indication: RENAL TRANSPLANT
     Dosage: 5MG, DAILY
     Route: 048
     Dates: start: 20100421

REACTIONS (2)
  - ANAEMIA [None]
  - WEGENER'S GRANULOMATOSIS [None]
